FAERS Safety Report 7298313-1 (Version None)
Quarter: 2011Q1

REPORT INFORMATION
  Report Type: 
  Country: None (occurrence: None)
  Receive Date: 20110217
  Receipt Date: 20100412
  Transmission Date: 20110831
  Serious: No
  Sender: FDA-Public Use
  Company Number: US-PFIZER INC-2010046776

PATIENT
  Sex: Female
  Weight: 81.633 kg

DRUGS (6)
  1. SYSTANE [Concomitant]
     Indication: DRY EYE
     Dosage: UNK
     Route: 047
  2. OXYCODONE HCL [Suspect]
     Indication: PAIN
     Dosage: 8 PILLS A DAY
  3. CYMBALTA [Concomitant]
     Indication: DEPRESSION
     Dosage: UNK
  4. XALATAN [Suspect]
     Indication: MACULAR OEDEMA
     Dosage: 0.005 %, 1X/DAY
     Route: 047
     Dates: start: 20100101, end: 20100411
  5. LISINOPRIL [Concomitant]
     Indication: HYPERTENSION
     Dosage: 10 MG, 1X/DAY
  6. METFORMIN [Concomitant]
     Indication: DIABETES MELLITUS
     Dosage: 500 MG, 2X/DAY

REACTIONS (2)
  - CONSTIPATION [None]
  - EXPIRED DRUG ADMINISTERED [None]
